FAERS Safety Report 6796349-8 (Version None)
Quarter: 2010Q2

REPORT INFORMATION
  Report Type: 
  Country: None (occurrence: None)
  Receive Date: 20100622
  Receipt Date: 20100607
  Transmission Date: 20101027
  Serious: Yes (Disabling)
  Sender: FDA-Public Use
  Company Number: 2010AP001192

PATIENT
  Age: 64 Year
  Sex: Female

DRUGS (6)
  1. AMLODIPINE BESYLATE [Suspect]
     Indication: HYPERTENSION
     Dosage: 5MG, PO, QD
     Route: 048
     Dates: start: 20060701, end: 20090804
  2. ASPIRIN [Concomitant]
  3. ATENOLOL [Concomitant]
  4. PARAFFIN, LIQUID (PARAFFIN, LIQUID) [Concomitant]
  5. WHITE SOFT PARAFFIN (WHITE SOFT PARAFFIN) [Concomitant]
  6. POLYVINYL ACOHOL (POLYVINYL ALCOHOL) [Concomitant]

REACTIONS (1)
  - TENDON PAIN [None]
